FAERS Safety Report 14256391 (Version 2)
Quarter: 2018Q2

REPORT INFORMATION
  Report Type: Spontaneous
  Country: GB (occurrence: GB)
  Receive Date: 20171206
  Receipt Date: 20180502
  Transmission Date: 20180711
  Serious: Yes (Death, Life-Threatening, Hospitalization, Other)
  Sender: FDA-Public Use
  Company Number: PHHY2017GB176658

PATIENT
  Age: 69 Year
  Sex: Female

DRUGS (2)
  1. NORMAL SALINE [Suspect]
     Active Substance: SODIUM CHLORIDE
     Indication: NEUROENDOCRINE TUMOUR
     Dosage: 0.9%;  50 ML 0.9% NORMAL SALINE RUNNING FROM 1 TO 5 ML/HOUR
     Route: 065
  2. OCTREOTIDE. [Suspect]
     Active Substance: OCTREOTIDE
     Indication: NEUROENDOCRINE TUMOUR
     Dosage: 5000 UG IN 50 ML 0.9% NORMAL SALINE RUNNING FROM 1 TO 5 ML/HOUR
     Route: 041

REACTIONS (2)
  - Therapy non-responder [Unknown]
  - Carcinoid crisis [Fatal]
